FAERS Safety Report 8150832-1 (Version None)
Quarter: 2012Q1

REPORT INFORMATION
  Report Type: 
  Country: None (occurrence: None)
  Receive Date: 20120220
  Receipt Date: 20120213
  Transmission Date: 20120608
  Serious: No
  Sender: FDA-Public Use
  Company Number: US-PFIZER INC-2012021943

PATIENT
  Sex: Female
  Weight: 68.9 kg

DRUGS (30)
  1. PREMARIN [Suspect]
     Indication: MEDICAL DEVICE IMPLANTATION
     Dosage: 1 G, 2X/WEEK
     Route: 067
  2. ACETAMINOPHEN [Concomitant]
     Dosage: 500 MG, AS NEEDED
  3. CARBIDOPA + LEVODOPA [Suspect]
     Indication: TREMOR
     Dosage: 25-100 MG 3X/DAY
  4. MYCOLOG [Concomitant]
     Dosage: TWICE DAILY AS NEEDED
     Route: 061
  5. VITAMIN D [Concomitant]
     Dosage: 1000 UNK, UNK
  6. CARBIDOPA + LEVODOPA [Suspect]
     Indication: BRAIN NEOPLASM
  7. ZYRTEC [Concomitant]
     Indication: HYPERSENSITIVITY
     Dosage: 10 MG, DAILY
     Route: 048
  8. GARAMYCIN [Concomitant]
     Dosage: 0.1 %, 1X/DAY
     Route: 061
  9. VITAMIN E [Concomitant]
     Dosage: 400 UNITS DAILY
  10. LACTOBACILLUS ACIDOPHILUS [Concomitant]
     Dosage: UNK
  11. VICKS VAPOSTEAM LIQUID MEDICATION [Concomitant]
  12. MULTI-VITAMINS [Concomitant]
     Dosage: UNK
     Route: 048
  13. LAMISIL [Concomitant]
     Dosage: 1 %, 2X/DAY; AS NEEDED
     Route: 061
  14. NEURONTIN [Concomitant]
     Dosage: 300 MG, 3X/DAY,  1IN AM , 1 IN PM, 2 AT NIGHT
     Route: 048
  15. LUTEIN [Concomitant]
     Dosage: 10 MG, 1X/DAY
     Route: 048
  16. PROPYLENE GLYCOL [Concomitant]
     Dosage: 0.3-0.4% UNK; PLACE IN AFFECTED EYE
  17. CELEBREX [Concomitant]
     Indication: BONE DISORDER
     Dosage: 200 MG, DAILY
  18. PREMARIN [Suspect]
     Indication: ATROPHIC VULVOVAGINITIS
     Dosage: UNK, 2X/WEEK, 1 GRAM
  19. FUROSEMIDE [Concomitant]
     Indication: OEDEMA PERIPHERAL
     Dosage: 40 MG, DAILY
     Route: 048
  20. COMBIVENT [Concomitant]
     Dosage: 18-103MCG- 2 PUFF EVERY 6 HOURS
  21. COLACE [Concomitant]
     Dosage: 100 MG, 3 CAPSULE AT HS
     Route: 048
  22. GLUCOSAMINE W/CHONDROITIN SULFATES [Concomitant]
     Dosage: UNK
  23. PREMARIN [Suspect]
     Indication: BLADDER PROLAPSE
     Dosage: 2 G, 2X/WEEK
  24. PREMARIN [Suspect]
     Dosage: UNK
  25. NEXIUM [Concomitant]
     Indication: GASTRIC DISORDER
     Dosage: 40 MG, 2X/DAY
     Route: 048
  26. CLINDAMYCIN PHOSPHATE [Concomitant]
     Dosage: 1 %, 2X/DAY
     Route: 061
  27. NEURONTIN [Concomitant]
     Indication: SCOLIOSIS
     Dosage: 300 MG, 4X/DAY
  28. LODOSYN [Concomitant]
     Dosage: 25 MG, 3X/DAY, ONE TAB
     Route: 048
  29. ASCORBIC ACID [Concomitant]
     Dosage: 1000 MG, DAILY
  30. CALCIUM [Concomitant]
     Dosage: 600 MG, 2X/DAY

REACTIONS (2)
  - INCORRECT DOSE ADMINISTERED [None]
  - ABDOMINAL DISCOMFORT [None]
